FAERS Safety Report 18339040 (Version 2)
Quarter: 2020Q4

REPORT INFORMATION
  Report Type: Spontaneous
  Country: US (occurrence: US)
  Receive Date: 20201002
  Receipt Date: 20201102
  Transmission Date: 20210113
  Serious: Yes (Death, Hospitalization, Other)
  Sender: FDA-Public Use
  Company Number: US-GILEAD-2020-0497200

PATIENT
  Age: 59 Year
  Sex: Male
  Weight: 130 kg

DRUGS (38)
  1. GABAPENTIN. [Concomitant]
     Active Substance: GABAPENTIN
  2. NOREPINEPHRINE. [Concomitant]
     Active Substance: NOREPINEPHRINE
  3. EPINEPHRINE. [Concomitant]
     Active Substance: EPINEPHRINE
  4. QUETIAPINE. [Concomitant]
     Active Substance: QUETIAPINE
  5. PLASMA-LYTE A [Concomitant]
     Active Substance: MAGNESIUM CHLORIDE\POTASSIUM CHLORIDE\SODIUM ACETATE\SODIUM CHLORIDE\SODIUM GLUCONATE
  6. FAMOTIDINE. [Concomitant]
     Active Substance: FAMOTIDINE
  7. DEXMEDETOMIDIN [Concomitant]
     Active Substance: DEXMEDETOMIDINE HYDROCHLORIDE
  8. METHOCARBAMOL. [Concomitant]
     Active Substance: METHOCARBAMOL
  9. SENOKOT-S [Concomitant]
     Active Substance: DOCUSATE SODIUM\SENNOSIDES
  10. ENOXAPARIN SODIUM. [Concomitant]
     Active Substance: ENOXAPARIN SODIUM
  11. MAGNESIUM SULFATE. [Concomitant]
     Active Substance: MAGNESIUM SULFATE
  12. CISATRACURIUM. [Concomitant]
     Active Substance: CISATRACURIUM
  13. REMDESIVIR. [Suspect]
     Active Substance: REMDESIVIR
     Dosage: 100 MG, QD
     Route: 042
     Dates: start: 20200929, end: 20200930
  14. SODIUM CHLORIDE. [Concomitant]
     Active Substance: SODIUM CHLORIDE
  15. BISACODYL. [Concomitant]
     Active Substance: BISACODYL
  16. POTASSIUM CHLORIDE. [Concomitant]
     Active Substance: POTASSIUM CHLORIDE
  17. REMDESIVIR. [Suspect]
     Active Substance: REMDESIVIR
     Indication: COVID-19
     Dosage: 200 MG, ONCE
     Route: 042
     Dates: start: 20200928, end: 20200928
  18. MIRALAX [Concomitant]
     Active Substance: POLYETHYLENE GLYCOL 3350
  19. MUPIROCIN. [Concomitant]
     Active Substance: MUPIROCIN
  20. POTASSIUM PHOSPHATE DIBASIC [Concomitant]
     Active Substance: POTASSIUM PHOSPHATE, DIBASIC
  21. MIDAZOLAM HCL [Concomitant]
     Active Substance: MIDAZOLAM HYDROCHLORIDE
  22. DIPHTHERIA TOXOID NOS [Concomitant]
     Active Substance: CORYNEBACTERIUM DIPHTHERIAE TOXOID ANTIGEN (FORMALDEHYDE INACTIVATED)
  23. RAMELTEON [Concomitant]
     Active Substance: RAMELTEON
  24. DEXTROSE. [Concomitant]
     Active Substance: DEXTROSE
  25. OXYCODONE HYDROCHLORIDE. [Concomitant]
     Active Substance: OXYCODONE HYDROCHLORIDE
  26. GLUCAGON. [Concomitant]
     Active Substance: GLUCAGON
  27. CALCIUM CHLORIDE. [Concomitant]
     Active Substance: CALCIUM CHLORIDE
  28. CEFEPIME [Concomitant]
     Active Substance: CEFEPIME HYDROCHLORIDE
  29. ACETAMINOPHEN. [Concomitant]
     Active Substance: ACETAMINOPHEN
  30. LIDOCAINE HCL [Concomitant]
     Active Substance: LIDOCAINE HYDROCHLORIDE
  31. ALBUTEROL [SALBUTAMOL] [Concomitant]
     Active Substance: ALBUTEROL
  32. DEXAMETHASONE. [Concomitant]
     Active Substance: DEXAMETHASONE
  33. INSULIN HUMAN [Concomitant]
     Active Substance: INSULIN HUMAN
  34. METOPROLOL TARTRATE. [Concomitant]
     Active Substance: METOPROLOL TARTRATE
  35. OLANZAPINE. [Concomitant]
     Active Substance: OLANZAPINE
  36. FLUCELVAX TETRA [Concomitant]
     Active Substance: INFLUENZA VIRUS VACCINE
  37. FENTANYL CITRATE. [Concomitant]
     Active Substance: FENTANYL CITRATE
  38. ANCEF [Concomitant]
     Active Substance: CEFAZOLIN SODIUM

REACTIONS (1)
  - Respiratory failure [Fatal]
